FAERS Safety Report 5132784-1 (Version None)
Quarter: 2006Q4

REPORT INFORMATION
  Report Type: 
  Country: None (occurrence: None)
  Receive Date: 20061019
  Receipt Date: 20061019
  Transmission Date: 20070319
  Serious: No
  Sender: FDA-Public Use
  Company Number: None

PATIENT
  Age: 54 Year
  Sex: Male
  Weight: 104.5541 kg

DRUGS (1)
  1. FLUOXETINE [Suspect]
     Indication: DEPRESSION
     Dosage: ONE  P.O.  Q DAILY
     Route: 048

REACTIONS (2)
  - STOMACH DISCOMFORT [None]
  - THERAPEUTIC PRODUCT INEFFECTIVE [None]
